FAERS Safety Report 6481010-X (Version None)
Quarter: 2009Q4

REPORT INFORMATION
  Report Type: 
  Country: None (occurrence: None)
  Receive Date: 20091208
  Receipt Date: 20091201
  Transmission Date: 20100525
  Serious: Yes (Other)
  Sender: FDA-Public Use
  Company Number: B0610565A

PATIENT
  Sex: Female
  Weight: 55 kg

DRUGS (2)
  1. ALLI [Suspect]
     Dosage: 180MG PER DAY
     Route: 048
     Dates: start: 20091117, end: 20091120
  2. UNKNOWN [Concomitant]
     Indication: MENOPAUSAL DISORDER
     Route: 065

REACTIONS (9)
  - CONSTIPATION [None]
  - DISCOMFORT [None]
  - DIZZINESS [None]
  - HAEMATURIA [None]
  - HEADACHE [None]
  - NEUROPATHY PERIPHERAL [None]
  - RENAL PAIN [None]
  - VERTIGO [None]
  - YELLOW SKIN [None]
